FAERS Safety Report 5554718-8 (Version None)
Quarter: 2007Q4

REPORT INFORMATION
  Report Type: 
  Country: None (occurrence: None)
  Receive Date: 20071213
  Receipt Date: 20070802
  Transmission Date: 20080405
  Serious: No
  Sender: FDA-Public Use
  Company Number: US-AMGEN-KDL237400

PATIENT
  Sex: Male

DRUGS (3)
  1. ENBREL [Suspect]
     Indication: DRUG USE FOR UNKNOWN INDICATION
     Route: 058
     Dates: start: 20070101
  2. AZATHIOPRINE [Concomitant]
     Route: 048
     Dates: start: 20061001
  3. METHOTREXATE [Concomitant]
     Route: 048
     Dates: start: 20050601

REACTIONS (1)
  - RASH [None]
